FAERS Safety Report 8533076-0 (Version None)
Quarter: 2012Q3

REPORT INFORMATION
  Report Type: 
  Country: None (occurrence: None)
  Receive Date: 20120724
  Receipt Date: 20120717
  Transmission Date: 20120928
  Serious: Yes (Life-Threatening, Hospitalization)
  Sender: FDA-Public Use
  Company Number: BR-BRISTOL-MYERS SQUIBB COMPANY-16297905

PATIENT
  Age: 60 Year
  Sex: Male
  Weight: 67 kg

DRUGS (9)
  1. CISPLATIN [Suspect]
     Indication: NON-SMALL CELL LUNG CANCER
     Dosage: LAST DOSE ON 22NOV2011 INTER ON 29NOV11
     Route: 042
     Dates: start: 20111101, end: 20111227
  2. ENOXAPARIN SODIUM [Concomitant]
  3. WARFARIN SODIUM [Concomitant]
     Dates: start: 20111213
  4. GEMCITABINE HYDROCHLORIDE [Suspect]
     Indication: NON-SMALL CELL LUNG CANCER
     Dosage: LAST DOSE ON 22NOV2011 INTER ON 29NOV11
     Route: 042
     Dates: start: 20111101, end: 20111227
  5. NECITUMUMAB [Suspect]
     Indication: NON-SMALL CELL LUNG CANCER
     Dosage: LIQUID; LAST DOSE ON 22NOV2011 INTER ON 29NOV11
     Route: 042
     Dates: start: 20111101, end: 20111227
  6. DEXTROSE [Concomitant]
     Dates: start: 20111129
  7. HEPARIN [Concomitant]
     Dates: start: 20111201, end: 20111201
  8. ENOXAPARIN SODIUM [Concomitant]
     Dates: start: 20111129
  9. DEXAMETHASONE [Concomitant]
     Dates: start: 20111208, end: 20111215

REACTIONS (3)
  - SUPRAVENTRICULAR TACHYCARDIA [None]
  - ARTERIAL OCCLUSIVE DISEASE [None]
  - DEHYDRATION [None]
